FAERS Safety Report 20696677 (Version 2)
Quarter: 2022Q2

REPORT INFORMATION
  Report Type: Spontaneous
  Country: CA (occurrence: CA)
  Receive Date: 20220411
  Receipt Date: 20220413
  Transmission Date: 20220721
  Serious: Yes (Other)
  Sender: FDA-Public Use
  Company Number: CA-PFIZER INC-202200531117

PATIENT
  Age: 23 Year
  Sex: Female

DRUGS (2)
  1. SULFASALAZINE [Suspect]
     Active Substance: SULFASALAZINE
     Indication: Rheumatoid arthritis
     Dosage: 1 DF, UNKNOWN DOSE
     Route: 065
     Dates: start: 202105, end: 202108
  2. SULFASALAZINE [Suspect]
     Active Substance: SULFASALAZINE
     Dosage: 1 DF, UNKNOWN DOSE
     Route: 065
     Dates: start: 202108, end: 202109

REACTIONS (5)
  - Headache [Unknown]
  - Pigmentation disorder [Unknown]
  - Hypersensitivity [Unknown]
  - Blood creatinine increased [Unknown]
  - Drug intolerance [Unknown]
